FAERS Safety Report 8291752-1 (Version None)
Quarter: 2012Q2

REPORT INFORMATION
  Report Type: 
  Country: None (occurrence: None)
  Receive Date: 20120417
  Receipt Date: 20110518
  Transmission Date: 20120825
  Serious: No
  Sender: FDA-Public Use
  Company Number: US-ASTRAZENECA-2011SE30171

PATIENT
  Age: 51 Year
  Sex: Female
  Weight: 140.2 kg

DRUGS (4)
  1. NEXIUM [Suspect]
     Route: 048
  2. LASIX [Concomitant]
  3. POTASSIUM [Concomitant]
  4. COZAAR [Concomitant]

REACTIONS (2)
  - CHEST PAIN [None]
  - INAPPROPRIATE SCHEDULE OF DRUG ADMINISTRATION [None]
